FAERS Safety Report 12449067 (Version 5)
Quarter: 2016Q3

REPORT INFORMATION
  Report Type: Report from Study
  Country: CA (occurrence: CA)
  Receive Date: 20160608
  Receipt Date: 20160827
  Transmission Date: 20161109
  Serious: Yes (Death, Life-Threatening, Other)
  Sender: FDA-Public Use
  Company Number: CA-ASTRAZENECA-2016SE57829

PATIENT
  Sex: Male

DRUGS (1)
  1. TAGRISSO [Suspect]
     Active Substance: OSIMERTINIB
     Route: 048
     Dates: end: 20160526

REACTIONS (5)
  - Pneumonia [Fatal]
  - Myocardial infarction [Unknown]
  - Arrhythmia [Unknown]
  - Pneumonitis [Fatal]
  - Cardiac arrest [Fatal]
